FAERS Safety Report 15594238 (Version 1)
Quarter: 2018Q4

REPORT INFORMATION
  Report Type: Spontaneous
  Country: US (occurrence: US)
  Receive Date: 20181107
  Receipt Date: 20181107
  Transmission Date: 20190205
  Serious: No
  Sender: FDA-Public Use
  Company Number: None

PATIENT
  Sex: Female

DRUGS (1)
  1. DIOVAN [Suspect]
     Active Substance: VALSARTAN

REACTIONS (4)
  - Dizziness [None]
  - Asthenia [None]
  - Syncope [None]
  - Vertigo [None]
